FAERS Safety Report 4627328-4 (Version None)
Quarter: 2005Q2

REPORT INFORMATION
  Report Type: 
  Country: None (occurrence: None)
  Receive Date: 20050405
  Receipt Date: 20050307
  Transmission Date: 20051028
  Serious: Yes (Other)
  Sender: FDA-Public Use
  Company Number: GB-ABBOTT-05P-167-0293498-00

PATIENT
  Age: 31 Year
  Sex: Female
  Weight: 58.7 kg

DRUGS (1)
  1. HUMIRA [Suspect]
     Indication: ARTHRITIS
     Route: 058
     Dates: start: 20040101, end: 20041101

REACTIONS (1)
  - TONSILLITIS [None]
